FAERS Safety Report 22683749 (Version 2)
Quarter: 2024Q1

REPORT INFORMATION
  Report Type: Spontaneous
  Country: US (occurrence: US)
  Receive Date: 20230708
  Receipt Date: 20240222
  Transmission Date: 20240410
  Serious: Yes (Hospitalization, Disabling, Other)
  Sender: FDA-Public Use
  Company Number: US-TEVA-2023-US-2905413

PATIENT
  Age: 48 Year
  Sex: Female
  Weight: 71 kg

DRUGS (14)
  1. MEDROXYPROGESTERONE [Suspect]
     Active Substance: MEDROXYPROGESTERONE
     Indication: Product used for unknown indication
     Dosage: DOSAGE: 150 MG/ML DOSAGE TEXT: RECEIVED INJECTIONS PERIODICALLY FOR 26 YEARS
     Route: 030
     Dates: start: 1995, end: 2021
  2. MEDROXYPROGESTERONE [Suspect]
     Active Substance: MEDROXYPROGESTERONE
     Indication: Product used for unknown indication
     Dosage: DOSAGE: 150 MG/ML
     Route: 030
     Dates: start: 20200817, end: 20210817
  3. MEDROXYPROGESTERONE [Suspect]
     Active Substance: MEDROXYPROGESTERONE
     Indication: Product used for unknown indication
     Dosage: DOSAGE: 150 MG/ML ADMINISTERED ON VENTROGLUTEAL LEFT.
     Route: 030
  4. MEDROXYPROGESTERONE [Suspect]
     Active Substance: MEDROXYPROGESTERONE
     Indication: Product used for unknown indication
     Dosage: DOSAGE: 150 MG/ML ADMINISTERED ON VENTROGLUTEAL LEFT.
     Route: 030
     Dates: start: 20200817, end: 20210817
  5. MEDROXYPROGESTERONE [Suspect]
     Active Substance: MEDROXYPROGESTERONE
     Indication: Product used for unknown indication
     Dosage: DOSAGE: 150 MG/ML ADMINISTERED ON VENTROGLUTEAL LEFT.
     Route: 030
     Dates: start: 20160407, end: 20160407
  6. MEDROXYPROGESTERONE [Suspect]
     Active Substance: MEDROXYPROGESTERONE
     Indication: Product used for unknown indication
     Dosage: DOSAGE: 150 MG/ML ADMINISTERED ON VENTROGLUTEAL LEFT.
     Route: 030
     Dates: start: 20200817, end: 20210817
  7. DEPO-PROVERA [Suspect]
     Active Substance: MEDROXYPROGESTERONE ACETATE
     Indication: Product used for unknown indication
     Dosage: DOSAGE TEXT: RECEIVED INJECTIONS PERIODICALLY FOR 26 YEARS
     Route: 065
     Dates: start: 1995, end: 2021
  8. CALCIUM [Concomitant]
     Active Substance: CALCIUM
     Indication: Product used for unknown indication
  9. FOLIC ACID [Concomitant]
     Active Substance: FOLIC ACID
     Indication: Product used for unknown indication
  10. VITAMIN D3 [Concomitant]
     Active Substance: CHOLECALCIFEROL
     Indication: Product used for unknown indication
  11. LUTEIN [Concomitant]
     Active Substance: LUTEIN
     Indication: Product used for unknown indication
  12. VITAMINS [Concomitant]
     Active Substance: VITAMINS
     Indication: Product used for unknown indication
  13. Olive leaf [Concomitant]
     Indication: Product used for unknown indication
  14. PLAN B ONE-STEP [Concomitant]
     Active Substance: LEVONORGESTREL
     Indication: Contraception
     Dosage: TIME INTERVAL: AS NECESSARY: WITHIN 72 HOURS OF UNPROTECTED SEX
     Route: 048

REACTIONS (15)
  - Blindness unilateral [Not Recovered/Not Resolved]
  - Visual field defect [Not Recovered/Not Resolved]
  - Visual acuity reduced [Not Recovered/Not Resolved]
  - Pupillary reflex impaired [Not Recovered/Not Resolved]
  - Meningioma [Unknown]
  - Muscular weakness [Unknown]
  - Brain neoplasm [Unknown]
  - Nervous system disorder [Unknown]
  - Osteoporosis [Unknown]
  - Osteopenia [Unknown]
  - Rib fracture [Unknown]
  - Headache [Unknown]
  - Neck pain [Unknown]
  - Visual impairment [Not Recovered/Not Resolved]
  - Hydrocephalus [Unknown]

NARRATIVE: CASE EVENT DATE: 20200101
